FAERS Safety Report 6390458-3 (Version None)
Quarter: 2009Q4

REPORT INFORMATION
  Report Type: 
  Country: None (occurrence: None)
  Receive Date: 20091006
  Receipt Date: 20090930
  Transmission Date: 20100525
  Serious: Yes (Other)
  Sender: FDA-Public Use
  Company Number: FR-BRISTOL-MYERS SQUIBB COMPANY-14802276

PATIENT
  Age: 43 Year
  Sex: Male

DRUGS (9)
  1. SKENAN LP CAPS 30 MG [Suspect]
     Dosage: 1 DF = 1 CAPS
     Route: 048
     Dates: start: 20090911, end: 20090915
  2. EFFERALGAN [Suspect]
     Dates: start: 20090901
  3. AMOXICILLIN [Suspect]
     Dosage: THEN RE-STARTED WITH 1.5G 3/DAY INTRAVENOUSLY AND STOPPED
     Dates: start: 20090904, end: 20090908
  4. SEVREDOL [Suspect]
     Dosage: TABLETS
     Route: 048
     Dates: start: 20090911
  5. MORPHINE HCL ELIXIR [Suspect]
     Dosage: 1 DF = 10 MG/ML
     Route: 058
     Dates: start: 20090911
  6. ASPEGIC 1000 [Suspect]
  7. ROVAMYCINE [Suspect]
  8. TAVANIC [Suspect]
     Dosage: ORAL SUSPENSION
  9. CLAFORAN [Suspect]
     Route: 042

REACTIONS (3)
  - CHOLESTASIS [None]
  - CYTOLYTIC HEPATITIS [None]
  - URINARY RETENTION [None]
